FAERS Safety Report 9366464 (Version 2)
Quarter: 2013Q3

REPORT INFORMATION
  Report Type: Spontaneous
  Country: US (occurrence: US)
  Receive Date: 20130625
  Receipt Date: 20130710
  Transmission Date: 20140515
  Serious: Yes (Other)
  Sender: FDA-Public Use
  Company Number: US-BRACCO-009708

PATIENT
  Age: 50 Year
  Sex: Male

DRUGS (17)
  1. MULTIHANCE [Suspect]
     Indication: NUCLEAR MAGNETIC RESONANCE IMAGING BRAIN
     Route: 042
     Dates: start: 20130526, end: 20130526
  2. LABETALOL [Concomitant]
     Route: 042
  3. NICARDIPINE [Concomitant]
  4. BUMETANIDE [Concomitant]
  5. CLONIDINE [Concomitant]
  6. CARVEDILOL [Concomitant]
     Route: 048
  7. HYDRALAZINE [Concomitant]
     Dosage: AT BREAKFAST AND LUNCH
  8. HYDRALAZINE [Concomitant]
     Dosage: THREE TIMES A DAY
  9. ASPIRIN [Concomitant]
     Route: 048
  10. INSULIN [Concomitant]
     Dosage: 25 UNITS EVERY HOUR OF SLEEP
     Route: 058
  11. POTASSIUM CHLORIDE [Concomitant]
     Dosage: 20 MEQ TWICE A DAY
     Route: 048
  12. VITAMIN D [Concomitant]
  13. NYSTATIN [Concomitant]
  14. OXYGEN [Concomitant]
     Dosage: AN INCREASE
     Route: 055
  15. VANCOMYCIN [Concomitant]
  16. AMLODIPINE [Concomitant]
     Route: 048
  17. ZOSYN [Concomitant]

REACTIONS (2)
  - Hypovolaemia [Recovering/Resolving]
  - Renal failure acute [Recovering/Resolving]
